FAERS Safety Report 21766956 (Version 2)
Quarter: 2023Q2

REPORT INFORMATION
  Report Type: Spontaneous
  Country: US (occurrence: US)
  Receive Date: 20221222
  Receipt Date: 20230410
  Transmission Date: 20230722
  Serious: Yes (Other)
  Sender: FDA-Public Use
  Company Number: US-PFIZER INC-PV202200129461

PATIENT
  Age: 49 Year
  Sex: Male

DRUGS (1)
  1. LORBRENA [Suspect]
     Active Substance: LORLATINIB
     Indication: Neoplasm malignant
     Dosage: 100 MG

REACTIONS (3)
  - Second primary malignancy [Unknown]
  - Sarcoma [Unknown]
  - Fatigue [Unknown]
